FAERS Safety Report 10221018 (Version 1)
Quarter: 2014Q2

REPORT INFORMATION
  Report Type: Spontaneous
  Country: KR (occurrence: KR)
  Receive Date: 20140606
  Receipt Date: 20140606
  Transmission Date: 20141212
  Serious: Yes (Hospitalization)
  Sender: FDA-Public Use
  Company Number: KR-MYLANLABS-2014S1012532

PATIENT
  Age: 75 Year
  Sex: Female

DRUGS (4)
  1. AMIODARONE [Suspect]
     Indication: ATRIAL FIBRILLATION
     Dosage: ADMINISTRATION OF AMIODARONE AGENTS; THEN RECEIVED 400MG/DAY
     Route: 065
  2. AMIODARONE [Suspect]
     Indication: OFF LABEL USE
     Dosage: ADMINISTRATION OF AMIODARONE AGENTS; THEN RECEIVED 400MG/DAY
     Route: 065
  3. AMIODARONE [Suspect]
     Indication: ATRIAL FIBRILLATION
     Dosage: 400MG/DAY
     Route: 065
  4. AMIODARONE [Suspect]
     Indication: OFF LABEL USE
     Dosage: 400MG/DAY
     Route: 065

REACTIONS (5)
  - Toxicity to various agents [Recovered/Resolved]
  - Liver scan abnormal [Recovered/Resolved]
  - Nausea [Recovered/Resolved]
  - Vomiting [Recovered/Resolved]
  - Tremor [Recovered/Resolved]
